FAERS Safety Report 22005151 (Version 1)
Quarter: 2023Q1

REPORT INFORMATION
  Report Type: Spontaneous
  Country: US (occurrence: US)
  Receive Date: 20230217
  Receipt Date: 20230217
  Transmission Date: 20230417
  Serious: Yes (Other)
  Sender: FDA-Public Use
  Company Number: US-MYLANLABS-2023M1016753

PATIENT
  Age: 44 Year
  Sex: Female

DRUGS (6)
  1. MYCOPHENOLATE MOFETIL [Suspect]
     Active Substance: MYCOPHENOLATE MOFETIL
     Indication: Immunosuppressant drug therapy
     Dosage: UNK
     Route: 065
  2. CYCLOSPORINE [Suspect]
     Active Substance: CYCLOSPORINE
     Indication: Immunosuppressant drug therapy
     Dosage: UNK
     Route: 065
  3. PREDNISONE [Suspect]
     Active Substance: PREDNISONE
     Indication: Systemic lupus erythematosus
     Dosage: UNK
     Route: 065
  4. FLUOROURACIL [Suspect]
     Active Substance: FLUOROURACIL
     Indication: Epidermodysplasia verruciformis
     Dosage: UNK; INTERMITTENT SHORT COURSES
     Route: 065
  5. TAZAROTENE [Suspect]
     Active Substance: TAZAROTENE
     Indication: Epidermodysplasia verruciformis
     Dosage: UNK; NIGHTLY
     Route: 065
  6. IMIQUIMOD [Suspect]
     Active Substance: IMIQUIMOD
     Indication: Epidermodysplasia verruciformis
     Dosage: UNK UNK, QW
     Route: 065

REACTIONS (3)
  - Epidermodysplasia verruciformis [Not Recovered/Not Resolved]
  - Drug ineffective for unapproved indication [Unknown]
  - Off label use [Unknown]
